FAERS Safety Report 25481339 (Version 1)
Quarter: 2025Q2

REPORT INFORMATION
  Report Type: Report from Study
  Country: CN (occurrence: None)
  Receive Date: 20250626
  Receipt Date: 20250626
  Transmission Date: 20250716
  Serious: Yes (Other)
  Sender: SOLSTICE NEUROSCIENCES, LLC
  Company Number: CN-Solstice Neurosciences, LLC-SOL202506-002132

PATIENT
  Age: 24 Year
  Sex: Female

DRUGS (1)
  1. RIMABOTULINUMTOXINB [Suspect]
     Active Substance: RIMABOTULINUMTOXINB
     Indication: Facial cosmetic procedure

REACTIONS (2)
  - Atypical mycobacterial infection [Recovered/Resolved]
  - Product use in unapproved indication [Unknown]
